FAERS Safety Report 8570459-7 (Version None)
Quarter: 2012Q3

REPORT INFORMATION
  Report Type: 
  Country: None (occurrence: None)
  Receive Date: 20120803
  Receipt Date: 20120725
  Transmission Date: 20120928
  Serious: Yes (Hospitalization)
  Sender: FDA-Public Use
  Company Number: US-ASTRAZENECA-2012SE52522

PATIENT
  Age: 54 Year
  Sex: Female
  Weight: 67.1 kg

DRUGS (5)
  1. WELLBUTRIN [Concomitant]
     Indication: ANXIETY
     Route: 048
     Dates: start: 20120601
  2. NEXIUM [Suspect]
     Indication: GASTROOESOPHAGEAL REFLUX DISEASE
     Dosage: DAILY
     Route: 048
     Dates: start: 20090101, end: 20120701
  3. TRAZODONE HCL [Concomitant]
     Indication: SLEEP DISORDER
     Route: 048
     Dates: start: 20120601
  4. PROZAC [Concomitant]
     Indication: DEPRESSION
     Route: 048
     Dates: start: 20120601
  5. KLONOPIN [Concomitant]
     Indication: ANXIETY
     Route: 048
     Dates: start: 20120601

REACTIONS (3)
  - BLOOD POTASSIUM DECREASED [None]
  - BLOOD MAGNESIUM DECREASED [None]
  - GASTROOESOPHAGEAL REFLUX DISEASE [None]
